FAERS Safety Report 14420505 (Version 7)
Quarter: 2019Q4

REPORT INFORMATION
  Report Type: Spontaneous
  Country: US (occurrence: US)
  Receive Date: 20180122
  Receipt Date: 20191105
  Transmission Date: 20200122
  Serious: Yes (Death, Hospitalization, Other)
  Sender: FDA-Public Use
  Company Number: US-ACTELION-A-US2018-165765

PATIENT
  Age: 74 Year
  Sex: Female

DRUGS (1)
  1. OPSUMIT [Suspect]
     Active Substance: MACITENTAN
     Indication: PULMONARY ARTERIAL HYPERTENSION
     Dosage: 10 MG, QD
     Route: 048
     Dates: start: 201609

REACTIONS (9)
  - Respiratory failure [Unknown]
  - Dyspnoea [Recovered/Resolved]
  - Death [Fatal]
  - Pericardial effusion [Recovered/Resolved]
  - Terminal state [Unknown]
  - Malaise [Unknown]
  - Hydronephrosis [Unknown]
  - Atrial fibrillation [Unknown]
  - Pulmonary oedema [Recovered/Resolved]

NARRATIVE: CASE EVENT DATE: 201801
